FAERS Safety Report 24656924 (Version 2)
Quarter: 2024Q4

REPORT INFORMATION
  Report Type: Spontaneous
  Country: US (occurrence: US)
  Receive Date: 20241125
  Receipt Date: 20241130
  Transmission Date: 20250115
  Serious: No
  Sender: ROCHE
  Company Number: US-ROCHE-10000138321

PATIENT
  Sex: Male

DRUGS (10)
  1. XOLAIR PFS [Suspect]
     Active Substance: OMALIZUMAB
     Indication: Dermatitis allergic
     Route: 058
  2. XOLAIR PFS [Suspect]
     Active Substance: OMALIZUMAB
  3. ATORVASTATIN [Concomitant]
     Active Substance: ATORVASTATIN
  4. CYCLOBENZAPRINE [Concomitant]
     Active Substance: CYCLOBENZAPRINE
  5. HYDROCHLOROTHIAZIDE [Concomitant]
     Active Substance: HYDROCHLOROTHIAZIDE
  6. hydrocortiso [Concomitant]
  7. LISINOPRIL [Concomitant]
     Active Substance: LISINOPRIL
  8. MECLIZINE [Concomitant]
     Active Substance: MECLIZINE HYDROCHLORIDE
  9. MUPIROCIN [Concomitant]
     Active Substance: MUPIROCIN
  10. HIGH DENSITY POLYETHYLENE [Concomitant]
     Active Substance: HIGH DENSITY POLYETHYLENE

REACTIONS (2)
  - Drug ineffective [Unknown]
  - Insomnia [Not Recovered/Not Resolved]
